FAERS Safety Report 8207010-7 (Version None)
Quarter: 2012Q1

REPORT INFORMATION
  Report Type: 
  Country: None (occurrence: None)
  Receive Date: 20120227
  Receipt Date: 20120113
  Transmission Date: 20120608
  Serious: No
  Sender: FDA-Public Use
  Company Number: 343506

PATIENT
  Age: 64 Year
  Sex: Female

DRUGS (2)
  1. VICTOZA [Suspect]
     Indication: TYPE 2 DIABETES MELLITUS
     Dosage: 0.6 MG, QD, SUBCUTANEOUS : 1.2 MG, QD, SUBCUTANEOUS
     Route: 058
     Dates: start: 20120103
  2. VICTOZA [Suspect]
     Indication: TYPE 2 DIABETES MELLITUS
     Dosage: 0.6 MG, QD, SUBCUTANEOUS : 1.2 MG, QD, SUBCUTANEOUS
     Route: 058
     Dates: start: 20120110, end: 20120112

REACTIONS (3)
  - FATIGUE [None]
  - BLOOD PRESSURE DECREASED [None]
  - NAUSEA [None]
